FAERS Safety Report 6434591-6 (Version None)
Quarter: 2009Q4

REPORT INFORMATION
  Report Type: 
  Country: None (occurrence: None)
  Receive Date: 20091110
  Receipt Date: 20091103
  Transmission Date: 20100525
  Serious: Yes (Hospitalization)
  Sender: FDA-Public Use
  Company Number: A0814762A

PATIENT
  Age: 55 Year
  Sex: Male

DRUGS (17)
  1. ADVAIR DISKUS 100/50 [Suspect]
     Indication: ASTHMA
     Dosage: 1PUFF TWICE PER DAY
     Route: 055
     Dates: start: 20040101
  2. ALBUTEROL [Concomitant]
  3. SINGULAIR [Concomitant]
  4. LIPITOR [Concomitant]
  5. GLIMEPIRIDE [Concomitant]
  6. APIDRA [Concomitant]
  7. LANTUS [Concomitant]
  8. METFORMIN HCL [Concomitant]
  9. ALLOPURINOL [Concomitant]
  10. LEVOXYL [Concomitant]
  11. FUROSEMIDE [Concomitant]
  12. MECLIZINE [Concomitant]
  13. LISINOPRIL [Concomitant]
  14. CLONIDINE [Concomitant]
  15. MULTI-VITAMIN [Concomitant]
  16. AVAPRO [Concomitant]
  17. AMLODIPINE [Concomitant]

REACTIONS (9)
  - AMNESIA [None]
  - BLOOD GLUCOSE INCREASED [None]
  - BRAIN STEM HAEMORRHAGE [None]
  - CEREBROVASCULAR ACCIDENT [None]
  - DIZZINESS [None]
  - HYPERTENSION [None]
  - HYPOAESTHESIA [None]
  - MALAISE [None]
  - PARAESTHESIA [None]
